FAERS Safety Report 4571767-7 (Version None)
Quarter: 2005Q1

REPORT INFORMATION
  Report Type: 
  Country: None (occurrence: None)
  Receive Date: 20050207
  Receipt Date: 20050127
  Transmission Date: 20050727
  Serious: Yes (Other)
  Sender: FDA-Public Use
  Company Number: GB-JNJFOC-20050200353

PATIENT
  Age: 56 Year
  Sex: Female

DRUGS (1)
  1. LYRINEL XL [Suspect]
     Indication: INCONTINENCE
     Route: 049

REACTIONS (1)
  - HAEMATURIA [None]
